FAERS Safety Report 25754949 (Version 1)
Quarter: 2025Q3

REPORT INFORMATION
  Report Type: Spontaneous
  Country: IN (occurrence: IN)
  Receive Date: 20250903
  Receipt Date: 20250903
  Transmission Date: 20251020
  Serious: Yes (Hospitalization, Other)
  Sender: RANBAXY
  Company Number: IN-SUN PHARMACEUTICAL INDUSTRIES INC-2025R1-525309

PATIENT
  Age: 77 Year
  Sex: Female

DRUGS (5)
  1. DIGOXIN [Suspect]
     Active Substance: DIGOXIN
     Indication: Atrial fibrillation
     Dosage: 125 MICROGRAM, OD
     Route: 065
  2. APIXABAN [Concomitant]
     Active Substance: APIXABAN
     Indication: Atrial fibrillation
     Dosage: 2.5 MILLIGRAM, BID
     Route: 065
  3. MIRTAZAPINE [Concomitant]
     Active Substance: MIRTAZAPINE
     Indication: Atrial fibrillation
     Dosage: 15 MILLIGRAM, OD
     Route: 065
  4. OMEPRAZOLE [Concomitant]
     Active Substance: OMEPRAZOLE
     Indication: Atrial fibrillation
     Dosage: 20 MILLIGRAM, DAILY
     Route: 065
  5. VALPROIC ACID [Concomitant]
     Active Substance: VALPROIC ACID
     Indication: Atrial fibrillation
     Dosage: 250 MILLIGRAM, DAILY
     Route: 065

REACTIONS (11)
  - Toxicity to various agents [Recovering/Resolving]
  - Cardiomyopathy [Unknown]
  - Hyperhidrosis [Unknown]
  - Vomiting [Unknown]
  - Abdominal pain [Unknown]
  - Abdominal distension [Unknown]
  - Confusional state [Unknown]
  - Altered state of consciousness [Unknown]
  - Dehydration [Unknown]
  - Heart rate irregular [Unknown]
  - Gastrointestinal sounds abnormal [Unknown]
